FAERS Safety Report 12781020 (Version 2)
Quarter: 2016Q3

REPORT INFORMATION
  Report Type: Spontaneous
  Country: US (occurrence: US)
  Receive Date: 20160926
  Receipt Date: 20160928
  Transmission Date: 20161109
  Serious: No
  Sender: FDA-Public Use
  Company Number: US-MISSION PHARMACAL COMPANY-1057705

PATIENT
  Age: 33 Year
  Sex: Female

DRUGS (1)
  1. THIOLA [Suspect]
     Active Substance: TIOPRONIN
     Indication: CYSTINURIA
     Route: 065
     Dates: start: 20160820

REACTIONS (2)
  - Vomiting [Recovering/Resolving]
  - Nausea [Unknown]
